FAERS Safety Report 11212582 (Version 1)
Quarter: 2015Q2

REPORT INFORMATION
  Report Type: Spontaneous
  Country: US (occurrence: None)
  Receive Date: 20150622
  Receipt Date: 20150622
  Transmission Date: 20150821
  Serious: Yes (Other)
  Sender: FDA-Public Use
  Company Number: None

PATIENT
  Age: 37 Year
  Sex: Female

DRUGS (2)
  1. BOTOX [Suspect]
     Active Substance: ONABOTULINUMTOXINA
     Indication: MIGRAINE
     Dosage: 400 UNITS EVERY 12 WEEKS INTRAMUSCULAR
     Route: 030
     Dates: start: 20140428
  2. FORTEO [Concomitant]
     Active Substance: TERIPARATIDE

REACTIONS (5)
  - Balance disorder [None]
  - Blood pressure increased [None]
  - Confusional state [None]
  - Heart rate increased [None]
  - Speech disorder [None]

NARRATIVE: CASE EVENT DATE: 20150615
